FAERS Safety Report 7788616-6 (Version None)
Quarter: 2011Q3

REPORT INFORMATION
  Report Type: 
  Country: None (occurrence: None)
  Receive Date: 20110928
  Receipt Date: 20110914
  Transmission Date: 20111222
  Serious: Yes (Other)
  Sender: FDA-Public Use
  Company Number: 982011

PATIENT
  Age: 64 Year
  Sex: Male
  Weight: 85 kg

DRUGS (4)
  1. THIAMINE HCL [Concomitant]
  2. PROPOFOL [Suspect]
     Indication: ANAESTHESIA
     Dosage: 130 MG, INTRAVENOUS (NOT OTHERWISE SPECIFIED)
     Route: 042
     Dates: start: 20110714, end: 20110714
  3. FOLIC ACID [Concomitant]
  4. M.V.I. [Concomitant]

REACTIONS (3)
  - DIZZINESS [None]
  - PALLOR [None]
  - CHILLS [None]
